FAERS Safety Report 4833235-4 (Version None)
Quarter: 2005Q4

REPORT INFORMATION
  Report Type: 
  Country: None (occurrence: None)
  Receive Date: 20051117
  Receipt Date: 20051031
  Transmission Date: 20060501
  Serious: Yes (Hospitalization)
  Sender: FDA-Public Use
  Company Number: JP_051007736

PATIENT
  Age: 66 Year
  Sex: Male
  Weight: 50 kg

DRUGS (5)
  1. GEMZAR [Suspect]
     Indication: PANCREATIC CARCINOMA
     Dosage: 1200 MG OTHER
     Route: 050
     Dates: start: 20050802, end: 20050913
  2. MAGMITT (MAGNESIUM OXIDE) [Concomitant]
  3. PURSENNID [Concomitant]
  4. FLOMOX (CEFCAPENE PIVOXIL HYDROCHLORIDE) [Concomitant]
  5. LOXONIN (LOXOPROFEN SODIUM) [Concomitant]

REACTIONS (4)
  - ABDOMINAL PAIN [None]
  - EMPHYSEMA [None]
  - PNEUMONITIS [None]
  - PNEUMOTHORAX [None]
